FAERS Safety Report 9708184 (Version 2)
Quarter: 2013Q4

REPORT INFORMATION
  Report Type: Spontaneous
  Country: CN (occurrence: None)
  Receive Date: 20131121
  Receipt Date: 20131209
  Transmission Date: 20140711
  Serious: Yes (Other)
  Sender: FDA-Public Use
  Company Number: CN-JNJFOC-20131107936

PATIENT
  Age: 45 Year
  Sex: Female

DRUGS (1)
  1. DECITABINE [Suspect]
     Indication: ACUTE MYELOID LEUKAEMIA
     Dosage: 20 MG/M2, IN 5 DAY, INTRAVENOUS?
     Route: 042

REACTIONS (5)
  - Acute graft versus host disease [None]
  - Lung infection [None]
  - Bone marrow failure [None]
  - Bacterial infection [None]
  - Asthenia [None]
